FAERS Safety Report 12710085 (Version 1)
Quarter: 2016Q3

REPORT INFORMATION
  Report Type: Spontaneous
  Country: US (occurrence: US)
  Receive Date: 20160902
  Receipt Date: 20160902
  Transmission Date: 20161109
  Serious: No
  Sender: FDA-Public Use
  Company Number: US-SUN PHARMACEUTICAL INDUSTRIES LTD-2015US-105003

PATIENT
  Sex: Female

DRUGS (1)
  1. EXELDERM [Suspect]
     Active Substance: SULCONAZOLE NITRATE
     Indication: INFECTION
     Dosage: UNK
     Route: 065

REACTIONS (1)
  - Product use issue [Unknown]
